FAERS Safety Report 19716946 (Version 2)
Quarter: 2025Q2

REPORT INFORMATION
  Report Type: Report from Study
  Country: BR (occurrence: BR)
  Receive Date: 20210818
  Receipt Date: 20250424
  Transmission Date: 20250716
  Serious: No
  Sender: TAKEDA
  Company Number: BR-TAKEDA-BR201942742

PATIENT
  Sex: Male
  Weight: 86 kg

DRUGS (2)
  1. HEMO-8R [Suspect]
     Active Substance: ANTIHEMOPHILIC FACTOR, HUMAN RECOMBINANT
     Indication: Factor VIII deficiency
     Dosage: 1500 INTERNATIONAL UNIT, 3/WEEK
     Dates: start: 19960403
  2. HEMO-8R [Suspect]
     Active Substance: ANTIHEMOPHILIC FACTOR, HUMAN RECOMBINANT
     Indication: Prophylaxis
     Dosage: 1500 INTERNATIONAL UNIT, 3/WEEK

REACTIONS (7)
  - Hypoacusis [Unknown]
  - Renal pain [Unknown]
  - Abdominal pain [Recovering/Resolving]
  - Headache [Not Recovered/Not Resolved]
  - Weight increased [Unknown]
  - Abdominal discomfort [Recovering/Resolving]
  - Arthralgia [Recovering/Resolving]
